FAERS Safety Report 20904438 (Version 1)
Quarter: 2022Q2

REPORT INFORMATION
  Report Type: Spontaneous
  Country: US (occurrence: US)
  Receive Date: 20220602
  Receipt Date: 20220602
  Transmission Date: 20220721
  Serious: Yes (Death)
  Sender: FDA-Public Use
  Company Number: US-SUN PHARMACEUTICAL INDUSTRIES LTD-2022R1-338798

PATIENT
  Age: 31 Year
  Sex: Female

DRUGS (3)
  1. CARBOPLATIN [Suspect]
     Active Substance: CARBOPLATIN
     Indication: Breast cancer
     Dosage: UNK (AUC 1.5 D1, 8, 15)
     Route: 065
     Dates: start: 20190709
  2. ABRAXANE [Suspect]
     Active Substance: PACLITAXEL
     Indication: Breast cancer
     Dosage: UNK (100 MG/M2 D1, 8, 15, REPEATED EVERY 28 DAYS)
     Route: 065
     Dates: start: 20190420
  3. ATEZOLIZUMAB [Suspect]
     Active Substance: ATEZOLIZUMAB
     Indication: Breast cancer
     Dosage: UNK (840 MG/M2 ON DAYS 1 AND 15, REPEATED EVERY 28 DAYS)
     Route: 065
     Dates: start: 20190420

REACTIONS (1)
  - Condition aggravated [Fatal]

NARRATIVE: CASE EVENT DATE: 20191001
